FAERS Safety Report 5974186-1 (Version None)
Quarter: 2008Q4

REPORT INFORMATION
  Report Type: 
  Country: None (occurrence: None)
  Receive Date: 20081125
  Receipt Date: 20081107
  Transmission Date: 20090506
  Serious: Yes (Death, Hospitalization, Disabling)
  Sender: FDA-Public Use
  Company Number: 2008S1000356

PATIENT
  Age: 57 Year
  Sex: Male
  Weight: 84 kg

DRUGS (4)
  1. CUBICIN [Suspect]
     Indication: MEDIASTINITIS
     Dosage: 4 MG/KG;Q24H; IV
     Route: 042
     Dates: start: 20070214, end: 20070222
  2. VANCOMYCIN [Concomitant]
  3. MEROPENEM [Concomitant]
  4. CLINDAMYCIN HCL [Concomitant]

REACTIONS (5)
  - DIALYSIS [None]
  - HEPATIC ENCEPHALOPATHY [None]
  - MULTI-ORGAN FAILURE [None]
  - POLYNEUROPATHY [None]
  - RENAL FAILURE [None]
